FAERS Safety Report 18263575 (Version 5)
Quarter: 2020Q4

REPORT INFORMATION
  Report Type: Report from Study
  Country: IT (occurrence: IT)
  Receive Date: 20200914
  Receipt Date: 20201217
  Transmission Date: 20210113
  Serious: Yes (Hospitalization, Other)
  Sender: FDA-Public Use
  Company Number: IT-MYLANLABS-2020M1077498

PATIENT
  Age: 93 Year
  Sex: Male

DRUGS (9)
  1. XARELTO [Suspect]
     Active Substance: RIVAROXABAN
     Indication: PRODUCT USED FOR UNKNOWN INDICATION
     Dosage: 45 MILLIGRAM, TOTAL
     Route: 065
     Dates: start: 20200707, end: 20200707
  2. XARELTO [Suspect]
     Active Substance: RIVAROXABAN
     Dosage: 45 MILLIGRAM, TOTAL
     Route: 065
     Dates: start: 20200707, end: 20200707
  3. PANTOPRAZOLE [Suspect]
     Active Substance: PANTOPRAZOLE
     Indication: PRODUCT USED FOR UNKNOWN INDICATION
     Dosage: 2 DOSAGE FORM, TOTAL
     Route: 065
     Dates: start: 20200707, end: 20200707
  4. MITTOVAL [Suspect]
     Active Substance: ALFUZOSIN HYDROCHLORIDE
     Indication: PRODUCT USED FOR UNKNOWN INDICATION
     Dosage: 60 MILLIGRAM, TOTAL
     Route: 048
     Dates: start: 20200707, end: 20200707
  5. LASIX [Suspect]
     Active Substance: FUROSEMIDE
     Indication: PRODUCT USED FOR UNKNOWN INDICATION
     Dosage: 50 MILLIGRAM, TOTAL
     Route: 065
     Dates: start: 20200707, end: 20200707
  6. OXYBUTYNIN. [Suspect]
     Active Substance: OXYBUTYNIN CHLORIDE
     Indication: PRODUCT USED FOR UNKNOWN INDICATION
     Dosage: 45 MILLIGRAM, TOTAL
     Route: 048
     Dates: start: 20200707, end: 20200707
  7. DUTASTERIDE. [Suspect]
     Active Substance: DUTASTERIDE
     Indication: PRODUCT USED FOR UNKNOWN INDICATION
     Dosage: 7.5 MILLIGRAM, TOTAL
     Route: 065
     Dates: start: 20200707, end: 20200707
  8. LEVOPRAID                          /01142501/ [Suspect]
     Active Substance: LEVOSULPIRIDE
     Indication: PRODUCT USED FOR UNKNOWN INDICATION
     Dosage: 50 MILLIGRAM, TOTAL
     Route: 065
     Dates: start: 20200707, end: 20200707
  9. CALCIUM FOLINATE [Suspect]
     Active Substance: LEUCOVORIN CALCIUM
     Indication: PRODUCT USED FOR UNKNOWN INDICATION
     Dosage: 45 MILLIGRAM, TOTAL
     Route: 065
     Dates: start: 20200707, end: 20200707

REACTIONS (5)
  - Disorganised speech [Not Recovered/Not Resolved]
  - Medication error [Unknown]
  - Intentional product misuse [Unknown]
  - Intentional overdose [Not Recovered/Not Resolved]
  - Drug abuse [Not Recovered/Not Resolved]

NARRATIVE: CASE EVENT DATE: 20200707
